FAERS Safety Report 7433987-3 (Version None)
Quarter: 2011Q2

REPORT INFORMATION
  Report Type: 
  Country: None (occurrence: None)
  Receive Date: 20110420
  Receipt Date: 20110420
  Transmission Date: 20111010
  Serious: Yes (Hospitalization)
  Sender: FDA-Public Use
  Company Number: None

PATIENT
  Age: 88 Year
  Sex: Female
  Weight: 56 kg

DRUGS (1)
  1. ALENDRONATE SODIUM [Suspect]
     Indication: ADVERSE DRUG REACTION
     Dosage: 70 MG WEEKLY PO
     Route: 048
     Dates: start: 20070101, end: 20110321

REACTIONS (2)
  - FALL [None]
  - FEMUR FRACTURE [None]
